FAERS Safety Report 20382981 (Version 1)
Quarter: 2022Q1

REPORT INFORMATION
  Report Type: Spontaneous
  Country: US (occurrence: None)
  Receive Date: 20220127
  Receipt Date: 20220127
  Transmission Date: 20220423
  Serious: Yes (Other)
  Sender: FDA-Public Use
  Company Number: None

PATIENT
  Sex: Female

DRUGS (6)
  1. ENBREL [Suspect]
     Active Substance: ETANERCEPT
  2. ATORVASTATIN [Concomitant]
  3. CALCIUM [Concomitant]
  4. HYDROXYCHLOR [Concomitant]
  5. LEVOTHYROXIN [Concomitant]
  6. SULFASALAZIN [Concomitant]

REACTIONS (1)
  - Intentional dose omission [None]
